FAERS Safety Report 11694693 (Version 1)
Quarter: 2015Q4

REPORT INFORMATION
  Report Type: Report from Study
  Country: US (occurrence: US)
  Receive Date: 20151103
  Receipt Date: 20151103
  Transmission Date: 20160304
  Serious: Yes (Hospitalization)
  Sender: FDA-Public Use
  Company Number: US-ABBVIE-15P-163-1489911-00

PATIENT
  Sex: Female

DRUGS (1)
  1. VIEKIRA PAK [Suspect]
     Active Substance: DASABUVIR\OMBITASVIR\PARITAPREVIR\RITONAVIR
     Indication: CHRONIC HEPATITIS C
     Dosage: 12.5MG/75MG/50MG TWO TABS IN AM; DASABUVIR 250 MG ONE TAB TWICE DAILY
     Route: 048

REACTIONS (4)
  - Generalised oedema [Unknown]
  - Pruritus [Unknown]
  - Headache [Unknown]
  - Pulmonary oedema [Unknown]
